FAERS Safety Report 8503030-3 (Version None)
Quarter: 2012Q3

REPORT INFORMATION
  Report Type: 
  Country: None (occurrence: None)
  Receive Date: 20120705
  Receipt Date: 20120705
  Transmission Date: 20120928
  Serious: Yes (Life-Threatening, Hospitalization, Other)
  Sender: FDA-Public Use
  Company Number: None

PATIENT
  Age: 19 Year
  Sex: Female
  Weight: 58.9676 kg

DRUGS (1)
  1. ZONISAMIDE [Suspect]
     Indication: CONVULSION
     Dosage: 300 MG 1 PER DAY PO
     Route: 048

REACTIONS (6)
  - HERNIA [None]
  - WEIGHT DECREASED [None]
  - CONSTIPATION [None]
  - RECTAL PROLAPSE [None]
  - INTESTINAL OBSTRUCTION [None]
  - NEPHROLITHIASIS [None]
